FAERS Safety Report 13540017 (Version 2)
Quarter: 2017Q2

REPORT INFORMATION
  Report Type: Spontaneous
  Country: US (occurrence: US)
  Receive Date: 20170512
  Receipt Date: 20170613
  Transmission Date: 20170830
  Serious: Yes (Hospitalization, Other)
  Sender: FDA-Public Use
  Company Number: US-GLAXOSMITHKLINE-US2017069418

PATIENT
  Sex: Male

DRUGS (6)
  1. ACITRETIN. [Suspect]
     Active Substance: ACITRETIN
  2. SORIATANE [Suspect]
     Active Substance: ACITRETIN
     Indication: SQUAMOUS CELL CARCINOMA OF SKIN
     Dosage: 10 MG, 1D
  3. RAPAMUNE [Concomitant]
     Active Substance: SIROLIMUS
  4. METOPROLOL. [Concomitant]
     Active Substance: METOPROLOL
  5. TACROLIMUS. [Suspect]
     Active Substance: TACROLIMUS
     Indication: KIDNEY TRANSPLANT REJECTION
     Dosage: UNK
     Dates: start: 2005
  6. PREDNISONE. [Concomitant]
     Active Substance: PREDNISONE

REACTIONS (7)
  - Finger amputation [Recovered/Resolved]
  - Product use in unapproved indication [Unknown]
  - Renal transplant [Recovered/Resolved]
  - Drug ineffective [Unknown]
  - Immunosuppression [Unknown]
  - Skin cancer [Not Recovered/Not Resolved]
  - Drug effect decreased [Unknown]

NARRATIVE: CASE EVENT DATE: 2011
